FAERS Safety Report 4711782-3 (Version None)
Quarter: 2005Q3

REPORT INFORMATION
  Report Type: 
  Country: None (occurrence: None)
  Receive Date: 20050712
  Receipt Date: 20050630
  Transmission Date: 20060218
  Serious: Yes (Life-Threatening)
  Sender: FDA-Public Use
  Company Number: NL-JNJFOC-20050700004

PATIENT
  Age: 71 Year
  Sex: Male

DRUGS (4)
  1. REMICADE [Suspect]
     Dosage: 3-10MG/KG
     Route: 042
  2. REMICADE [Suspect]
     Indication: RHEUMATOID ARTHRITIS
     Dosage: 3-10MG/KG
     Route: 042
  3. METHOTREXATE [Concomitant]
     Route: 049
  4. FOLIC ACID [Concomitant]
     Route: 065

REACTIONS (1)
  - MALIGNANT MELANOMA [None]
